FAERS Safety Report 5039862-6 (Version None)
Quarter: 2006Q2

REPORT INFORMATION
  Report Type: 
  Country: None (occurrence: None)
  Receive Date: 20060601
  Receipt Date: 20060110
  Transmission Date: 20061013
  Serious: No
  Sender: FDA-Public Use
  Company Number: 2006PV006883

PATIENT
  Age: 61 Year
  Sex: Female
  Weight: 90.7194 kg

DRUGS (3)
  1. BYETTA [Suspect]
     Indication: DIABETES MELLITUS NON-INSULIN-DEPENDENT
     Dosage: 5 MCG BID SC
     Route: 058
     Dates: start: 20060109
  2. GLUCOVANCE [Concomitant]
  3. ACTOS ^LILLY^ [Concomitant]

REACTIONS (7)
  - BLOOD GLUCOSE DECREASED [None]
  - DECREASED APPETITE [None]
  - FEELING JITTERY [None]
  - NAUSEA [None]
  - POLLAKIURIA [None]
  - THERAPEUTIC RESPONSE UNEXPECTED [None]
  - URINE OUTPUT INCREASED [None]
